FAERS Safety Report 8562104-1 (Version None)
Quarter: 2012Q3

REPORT INFORMATION
  Report Type: 
  Country: None (occurrence: None)
  Receive Date: 20120802
  Receipt Date: 20120706
  Transmission Date: 20120928
  Serious: No
  Sender: FDA-Public Use
  Company Number: US-AMGEN-USASP2012041958

PATIENT
  Age: 32 Year
  Sex: Female

DRUGS (3)
  1. HUMIRA [Concomitant]
     Dosage: UNK
  2. REMICADE [Concomitant]
     Dosage: UNK
  3. ENBREL [Suspect]
     Indication: RHEUMATOID ARTHRITIS
     Dosage: 50 MG, QWK
     Dates: start: 20000101

REACTIONS (4)
  - RHEUMATOID ARTHRITIS [None]
  - ARTHROPATHY [None]
  - HEADACHE [None]
  - DRUG INEFFECTIVE [None]
